FAERS Safety Report 5431517-9 (Version None)
Quarter: 2007Q3

REPORT INFORMATION
  Report Type: 
  Country: None (occurrence: None)
  Receive Date: 20070731
  Receipt Date: 20070516
  Transmission Date: 20080115
  Serious: No
  Sender: FDA-Public Use
  Company Number: US20070504469

PATIENT
  Sex: Female

DRUGS (2)
  1. BYETTA [Suspect]
     Indication: TYPE 2 DIABETES MELLITUS
     Dosage: 15 UG, 2/D, SUBCUTANEOUS
     Route: 058
  2. EXENATIDE STRENGTH PEN, DISPOSABLE DEVICE (EXENATIDE PEN) [Concomitant]

REACTIONS (1)
  - DRUG PRESCRIBING ERROR [None]
